FAERS Safety Report 10453842 (Version 2)
Quarter: 2014Q4

REPORT INFORMATION
  Report Type: Spontaneous
  Country: US (occurrence: US)
  Receive Date: 20140915
  Receipt Date: 20141205
  Transmission Date: 20150528
  Serious: No
  Sender: FDA-Public Use
  Company Number: US-BRISTOL-MYERS SQUIBB COMPANY-21309737

PATIENT
  Age: 87 Year
  Sex: Female
  Weight: 64.4 kg

DRUGS (2)
  1. ELIQUIS [Suspect]
     Active Substance: APIXABAN
  2. CALCIUM [Concomitant]
     Active Substance: CALCIUM

REACTIONS (5)
  - Burning sensation [Unknown]
  - Back pain [Recovering/Resolving]
  - Gait disturbance [Unknown]
  - Arthropod bite [Unknown]
  - Fatigue [Unknown]

NARRATIVE: CASE EVENT DATE: 201407
